FAERS Safety Report 14713004 (Version 1)
Quarter: 2018Q2

REPORT INFORMATION
  Report Type: Spontaneous
  Country: DK (occurrence: DK)
  Receive Date: 20180404
  Receipt Date: 20180404
  Transmission Date: 20180711
  Serious: Yes (Other)
  Sender: FDA-Public Use
  Company Number: DK-B.I. PHARMACEUTICALS,INC./RIDGEFIELD-2018-BI-018183

PATIENT
  Sex: Female

DRUGS (5)
  1. SIFROL [Suspect]
     Active Substance: PRAMIPEXOLE
     Route: 065
  2. SIFROL [Suspect]
     Active Substance: PRAMIPEXOLE
     Dosage: UNIT DOSE: 0.175MG IN THE MORNING AND 0.35MG IN THE EVENING; DAILY DOSE: 0.525MG
     Route: 065
  3. SIFROL [Suspect]
     Active Substance: PRAMIPEXOLE
     Indication: RESTLESS LEGS SYNDROME
     Route: 065
  4. SIFROL [Suspect]
     Active Substance: PRAMIPEXOLE
     Route: 065
  5. SIFROL [Suspect]
     Active Substance: PRAMIPEXOLE
     Route: 065

REACTIONS (6)
  - Therapeutic response unexpected [Unknown]
  - Feeling abnormal [Unknown]
  - Off label use [Unknown]
  - Overdose [Unknown]
  - Drug dependence [Unknown]
  - Drug ineffective [Unknown]
